FAERS Safety Report 15546457 (Version 1)
Quarter: 2018Q4

REPORT INFORMATION
  Report Type: Spontaneous
  Country: US (occurrence: US)
  Receive Date: 20181023
  Receipt Date: 20181023
  Transmission Date: 20190205
  Serious: Yes (Death)
  Sender: FDA-Public Use
  Company Number: None

PATIENT
  Age: 44 Year
  Sex: Male
  Weight: 93.15 kg

DRUGS (6)
  1. MOBIC [Concomitant]
     Active Substance: MELOXICAM
  2. GABAPENTIN. [Concomitant]
     Active Substance: GABAPENTIN
  3. TOPIRAMATE. [Suspect]
     Active Substance: TOPIRAMATE
     Indication: NEURALGIA
     Dosage: ?          QUANTITY:1 TABLET(S);?
     Route: 048
     Dates: start: 20180828, end: 20180901
  4. ACTOS/METFORMIN [Concomitant]
  5. METHOCARBOMAL [Concomitant]
     Active Substance: METHOCARBAMOL
  6. SEROQUEL [Concomitant]
     Active Substance: QUETIAPINE FUMARATE

REACTIONS (4)
  - Pain [None]
  - Tremor [None]
  - Hypophagia [None]
  - Thirst [None]

NARRATIVE: CASE EVENT DATE: 20180901
